FAERS Safety Report 8050083-5 (Version None)
Quarter: 2011Q4

REPORT INFORMATION
  Report Type: 
  Country: None (occurrence: None)
  Receive Date: 20111212
  Receipt Date: 20111028
  Transmission Date: 20120403
  Serious: Yes (Other)
  Sender: FDA-Public Use
  Company Number: PHHY2011US48834

PATIENT
  Age: 63 Year
  Sex: Female

DRUGS (6)
  1. ANTIVERT [Concomitant]
  2. SOLU-MEDROL [Concomitant]
  3. LIPITOR [Concomitant]
  4. EXTAVIA [Suspect]
     Indication: MULTIPLE SCLEROSIS
     Dosage: 0.25MG, QOD, SUBCUTANEOUS
     Route: 058
     Dates: start: 20100326
  5. VITAMIN D [Concomitant]
  6. THYROID TAB [Concomitant]

REACTIONS (8)
  - MULTIPLE SCLEROSIS RELAPSE [None]
  - NAUSEA [None]
  - ASTHENIA [None]
  - GAIT DISTURBANCE [None]
  - PAIN IN EXTREMITY [None]
  - PAIN [None]
  - ABDOMINAL DISCOMFORT [None]
  - MUSCLE SPASMS [None]
